FAERS Safety Report 10629616 (Version 1)
Quarter: 2014Q4

REPORT INFORMATION
  Report Type: Spontaneous
  Country: US (occurrence: US)
  Receive Date: 20141205
  Receipt Date: 20141205
  Transmission Date: 20150529
  Serious: No
  Sender: FDA-Public Use
  Company Number: US-BRISTOL-MYERS SQUIBB COMPANY-21461884

PATIENT
  Sex: Male

DRUGS (5)
  1. ABILIFY [Suspect]
     Active Substance: ARIPIPRAZOLE
  2. INVEGA [Suspect]
     Active Substance: PALIPERIDONE
     Indication: SCHIZOPHRENIA, PARANOID TYPE
     Dosage: 156 MG. 10-SEP-2014-STOPPED
     Route: 030
     Dates: start: 20140904
  3. VALPROIC ACID. [Suspect]
     Active Substance: VALPROIC ACID
  4. INVEGA [Suspect]
     Active Substance: PALIPERIDONE
     Indication: SCHIZOPHRENIA, PARANOID TYPE
     Dosage: FOR: TABS
     Route: 048
     Dates: start: 2014
  5. KLONOPIN [Suspect]
     Active Substance: CLONAZEPAM

REACTIONS (4)
  - Hallucination, auditory [Unknown]
  - Hallucination, visual [Recovering/Resolving]
  - Delusion [Recovering/Resolving]
  - General physical health deterioration [Unknown]
